FAERS Safety Report 25358355 (Version 1)
Quarter: 2025Q2

REPORT INFORMATION
  Report Type: Spontaneous
  Country: US (occurrence: US)
  Receive Date: 20250526
  Receipt Date: 20250526
  Transmission Date: 20250717
  Serious: No
  Sender: MALLINCKRODT
  Company Number: US-MALLINCKRODT-MNK202502950

PATIENT
  Age: 65 Year
  Sex: Female

DRUGS (4)
  1. CORTICOTROPIN [Suspect]
     Active Substance: CORTICOTROPIN
     Indication: Arthropathy
     Route: 058
     Dates: start: 202501
  2. CORTICOTROPIN [Suspect]
     Active Substance: CORTICOTROPIN
     Indication: Arthropathy
  3. CORTICOTROPIN [Suspect]
     Active Substance: CORTICOTROPIN
     Indication: Product used for unknown indication
  4. CORTICOTROPIN [Suspect]
     Active Substance: CORTICOTROPIN
     Dosage: UNKNOWN

REACTIONS (7)
  - Somnolence [Unknown]
  - Weight fluctuation [Unknown]
  - Tremor [Unknown]
  - Insomnia [Not Recovered/Not Resolved]
  - Fatigue [Unknown]
  - Peripheral swelling [Unknown]
  - Periorbital swelling [Unknown]

NARRATIVE: CASE EVENT DATE: 20250101
